FAERS Safety Report 4660199-9 (Version None)
Quarter: 2005Q2

REPORT INFORMATION
  Report Type: 
  Country: None (occurrence: None)
  Receive Date: 20050505
  Receipt Date: 20050117
  Transmission Date: 20051028
  Serious: No
  Sender: FDA-Public Use
  Company Number: 2004USFACT00205

PATIENT
  Age: 61 Year
  Sex: Female
  Weight: 89.8 kg

DRUGS (7)
  1. FACTIVE [Suspect]
     Indication: RESPIRATORY TRACT INFECTION BACTERIAL
     Dosage: 320.00 MG, QD, ORAL
     Route: 048
     Dates: start: 20041213, end: 20041218
  2. ZYRTEC [Concomitant]
  3. CLONIDINE [Concomitant]
  4. LODINE XL [Concomitant]
  5. SALAGEN [Concomitant]
  6. BENICAR [Concomitant]
  7. METHOTREXATE [Concomitant]

REACTIONS (3)
  - AGEUSIA [None]
  - ORAL MUCOSAL BLISTERING [None]
  - RASH GENERALISED [None]
